FAERS Safety Report 6655567-X (Version None)
Quarter: 2010Q1

REPORT INFORMATION
  Report Type: 
  Country: None (occurrence: None)
  Receive Date: 20100326
  Receipt Date: 20100326
  Transmission Date: 20100710
  Serious: Yes (Hospitalization)
  Sender: FDA-Public Use
  Company Number: None

PATIENT
  Age: 61 Year
  Sex: Male
  Weight: 83.5 kg

DRUGS (1)
  1. NALBUPHINE [Suspect]
     Indication: PAIN
     Dosage: 10 MG ONCE IV
     Route: 042
     Dates: start: 20100130, end: 20100130

REACTIONS (4)
  - CHEST DISCOMFORT [None]
  - HYPOTENSION [None]
  - LYMPHADENOPATHY MEDIASTINAL [None]
  - PLEURAL EFFUSION [None]
